FAERS Safety Report 20923360 (Version 1)
Quarter: 2022Q2

REPORT INFORMATION
  Report Type: Spontaneous
  Country: MT (occurrence: MT)
  Receive Date: 20220607
  Receipt Date: 20220607
  Transmission Date: 20220721
  Serious: Yes (Other)
  Sender: FDA-Public Use
  Company Number: MT-STRIDES ARCOLAB LIMITED-2022SP006661

PATIENT
  Age: 82 Year
  Sex: Female

DRUGS (2)
  1. OLANZAPINE [Suspect]
     Active Substance: OLANZAPINE
     Indication: Neuropsychiatric symptoms
     Dosage: 5 MILLIGRAM, AT BED TIME
     Route: 065
  2. OLANZAPINE [Suspect]
     Active Substance: OLANZAPINE
     Dosage: UNK (TAPERED DOWN)
     Route: 065

REACTIONS (3)
  - Hypothermia [Recovered/Resolved]
  - Oedema peripheral [Recovered/Resolved]
  - Generalised oedema [Recovered/Resolved]
